FAERS Safety Report 18819308 (Version 1)
Quarter: 2021Q1

REPORT INFORMATION
  Report Type: Spontaneous
  Country: US (occurrence: US)
  Receive Date: 20210201
  Receipt Date: 20210201
  Transmission Date: 20210419
  Serious: No
  Sender: FDA-Public Use
  Company Number: US-LANNETT COMPANY, INC.-US-2020LAN000290

PATIENT
  Sex: Female

DRUGS (1)
  1. TRIAMTERENE AND HYDROCHLOROTHIAZIDE [Suspect]
     Active Substance: HYDROCHLOROTHIAZIDE\TRIAMTERENE
     Indication: HYPERTENSION
     Dosage: 1 CAPSULE, QD
     Route: 048
     Dates: start: 2020, end: 2020

REACTIONS (11)
  - Palpitations [Unknown]
  - Peripheral swelling [Unknown]
  - Swelling [Unknown]
  - Abdominal distension [Unknown]
  - Drug ineffective [Unknown]
  - Tinnitus [Unknown]
  - Ocular discomfort [Unknown]
  - Head discomfort [Unknown]
  - Headache [Unknown]
  - Heart rate increased [Unknown]
  - Product substitution issue [Unknown]

NARRATIVE: CASE EVENT DATE: 2020
